FAERS Safety Report 10142833 (Version 1)
Quarter: 2014Q2

REPORT INFORMATION
  Report Type: Spontaneous
  Country: US (occurrence: None)
  Receive Date: 20140428
  Receipt Date: 20140428
  Transmission Date: 20141212
  Serious: Yes (Death)
  Sender: FDA-Public Use
  Company Number: 2014-US-0109

PATIENT
  Age: 73 Year
  Sex: Female
  Weight: 74.84 kg

DRUGS (3)
  1. SANCUSO 3.1 MG/24 HR [Suspect]
     Indication: PROPHYLAXIS OF NAUSEA AND VOMITING
     Route: 061
     Dates: start: 20140225
  2. SANCUSO 3.1 MG/24 HR [Suspect]
     Route: 061
     Dates: start: 20140225
  3. LORAZEPAM [Concomitant]

REACTIONS (1)
  - Death [None]
